FAERS Safety Report 4462548-3 (Version None)
Quarter: 2004Q3

REPORT INFORMATION
  Report Type: 
  Country: None (occurrence: None)
  Receive Date: 20040924
  Receipt Date: 20040913
  Transmission Date: 20050211
  Serious: Yes (Disabling)
  Sender: FDA-Public Use
  Company Number: 2004-04050

PATIENT
  Age: 50 Year
  Sex: Male
  Weight: 81.6 kg

DRUGS (2)
  1. ANDRODERM [Suspect]
     Indication: ANDROPAUSE
     Dosage: 1 PATCH, SINGLE, TRANSDERMAL
     Route: 062
     Dates: start: 20040219, end: 20040220
  2. HYDROCHLOROTHIAZIDE [Concomitant]

REACTIONS (3)
  - CIRCULATORY COLLAPSE [None]
  - NAUSEA [None]
  - VERTIGO [None]
